FAERS Safety Report 16273625 (Version 1)
Quarter: 2019Q2

REPORT INFORMATION
  Report Type: Spontaneous
  Country: US (occurrence: US)
  Receive Date: 20190506
  Receipt Date: 20190506
  Transmission Date: 20190711
  Serious: Yes (Life-Threatening, Other)
  Sender: FDA-Public Use
  Company Number: US-HIKMA PHARMACEUTICALS USA INC.-US-H14001-19-02848

PATIENT
  Age: 66 Year
  Sex: Male

DRUGS (1)
  1. FLECAINIDE [Suspect]
     Active Substance: FLECAINIDE
     Indication: ATRIAL FIBRILLATION
     Route: 065

REACTIONS (4)
  - Tachycardia [Recovered/Resolved]
  - Toxicity to various agents [Recovered/Resolved]
  - Atrial flutter [Recovered/Resolved]
  - Hypotension [Recovered/Resolved]
